FAERS Safety Report 17851506 (Version 4)
Quarter: 2020Q3

REPORT INFORMATION
  Report Type: Spontaneous
  Country: PL (occurrence: PL)
  Receive Date: 20200602
  Receipt Date: 20200718
  Transmission Date: 20201103
  Serious: Yes (Life-Threatening, Hospitalization, Other)
  Sender: FDA-Public Use
  Company Number: NVSC2020PL152462

PATIENT
  Age: 51 Year
  Sex: Female
  Weight: 65 kg

DRUGS (17)
  1. QUETIAPINE. [Suspect]
     Active Substance: QUETIAPINE
     Indication: BIPOLAR DISORDER
     Dosage: 400 MG, QD, 50 MG/D; UPTITRATE THE QUETIAPINE DOSE TO 400MG/D, WHICH TOOK 9 DAYS
     Route: 065
  2. VENLAFAXINE [Concomitant]
     Active Substance: VENLAFAXINE HYDROCHLORIDE
     Indication: DEPRESSION
     Dosage: UNK
     Route: 065
  3. LAMOTRIGINE. [Suspect]
     Active Substance: LAMOTRIGINE
     Indication: BIPOLAR DISORDER
     Dosage: 25 MG, QD
     Route: 048
     Dates: start: 2017
  4. GABAPENTIN. [Suspect]
     Active Substance: GABAPENTIN
     Indication: EXTRAPYRAMIDAL DISORDER
     Dosage: 800 MG, QD
     Route: 065
  5. OLANZAPINE. [Suspect]
     Active Substance: OLANZAPINE
     Indication: PSYCHOTIC SYMPTOM
     Dosage: 5 MG, QD
     Route: 065
  6. LITHIUM. [Suspect]
     Active Substance: LITHIUM
     Indication: DEPRESSION
     Dosage: MAXIMUM 1000 MG, QD
     Route: 065
  7. QUETIAPINE. [Suspect]
     Active Substance: QUETIAPINE
     Indication: DEPRESSION
     Dosage: 50 MILLIGRAM, QD
     Route: 048
  8. CARBAMAZEPINE. [Suspect]
     Active Substance: CARBAMAZEPINE
     Indication: DEPRESSION
     Dosage: 200 MG/D, MAX. TO 800 MG/D, QD
     Route: 065
  9. BIPERIDEN [Suspect]
     Active Substance: BIPERIDEN
     Indication: MUSCULOSKELETAL STIFFNESS
     Dosage: 4 MG, QD
     Route: 065
  10. ARIPIPRAZOLE. [Suspect]
     Active Substance: ARIPIPRAZOLE
     Indication: BIPOLAR DISORDER
     Dosage: FINAL DOSE OF 30 MG/D OVER 2 WEEKS
     Route: 048
     Dates: start: 2017
  11. ARIPIPRAZOLE. [Suspect]
     Active Substance: ARIPIPRAZOLE
     Indication: DEPRESSION
     Dosage: 7.5 MG, QD
     Route: 048
     Dates: start: 2017
  12. FLUOXETINE [Suspect]
     Active Substance: FLUOXETINE HYDROCHLORIDE
     Indication: DEPRESSION
     Dosage: 60 MG, QD
     Route: 065
  13. LEVOTHYROXINE. [Concomitant]
     Active Substance: LEVOTHYROXINE
     Indication: HYPOTHYROIDISM
     Dosage: UNK
     Route: 065
     Dates: start: 2015, end: 2016
  14. ARIPIPRAZOLE. [Suspect]
     Active Substance: ARIPIPRAZOLE
     Indication: DELUSION
  15. PERAZINE [Suspect]
     Active Substance: PERAZINE
     Indication: DEPRESSION
     Dosage: 150 MILLIGRAM, QD
     Route: 065
  16. LAMOTRIGINE. [Suspect]
     Active Substance: LAMOTRIGINE
     Indication: DEPRESSION
     Dosage: 50 MG, QD
     Route: 048
     Dates: start: 2017
  17. LAMOTRIGINE. [Suspect]
     Active Substance: LAMOTRIGINE
     Indication: MOOD SWINGS
     Dosage: COMMENCED AT A DOSE OF 25MG/D, WHICH THE PATIENT TOOK FOR 2 WEEKS. THE DOSAGE WAS THEN INCREASED TO
     Route: 048

REACTIONS (18)
  - Altered state of consciousness [Recovered/Resolved]
  - Acute kidney injury [Recovered/Resolved]
  - Ideas of reference [Unknown]
  - Cogwheel rigidity [Recovered/Resolved]
  - Sopor [Recovered/Resolved]
  - Pyrexia [Recovered/Resolved]
  - Delusional perception [Recovered/Resolved]
  - Toxicity to various agents [Recovered/Resolved]
  - Therapeutic response decreased [Unknown]
  - Agitation [Recovered/Resolved]
  - Persecutory delusion [Unknown]
  - Anxiety [Unknown]
  - Mental impairment [Unknown]
  - Depressed mood [Unknown]
  - Sleep disorder [Unknown]
  - Drug ineffective [Unknown]
  - Neuroleptic malignant syndrome [Recovered/Resolved]
  - Tremor [Recovered/Resolved]

NARRATIVE: CASE EVENT DATE: 2017
